FAERS Safety Report 19525004 (Version 1)
Quarter: 2021Q3

REPORT INFORMATION
  Report Type: Spontaneous
  Country: US (occurrence: US)
  Receive Date: 20210713
  Receipt Date: 20210713
  Transmission Date: 20211014
  Serious: Yes (Life-Threatening, Hospitalization, Disabling, Other)
  Sender: FDA-Public Use
  Company Number: None

PATIENT
  Age: 53 Year
  Sex: Female
  Weight: 83.25 kg

DRUGS (4)
  1. LEFLUNOMIDE. [Suspect]
     Active Substance: LEFLUNOMIDE
     Indication: ARTHRITIS
     Dosage: ?          QUANTITY:1 TABLET(S);?
     Route: 048
     Dates: start: 20210301, end: 20210707
  2. TREMFYA [Suspect]
     Active Substance: GUSELKUMAB
     Indication: ARTHRITIS
     Dosage: ?          QUANTITY:1 TABLET(S);OTHER FREQUENCY:SHOT EVER 8 WEEKS;?
     Route: 058
  3. NAPROXEN. [Concomitant]
     Active Substance: NAPROXEN
  4. WELLBUTRIN [Concomitant]
     Active Substance: BUPROPION HYDROCHLORIDE

REACTIONS (1)
  - Brain stem stroke [None]

NARRATIVE: CASE EVENT DATE: 20210707
